FAERS Safety Report 8030375-6 (Version None)
Quarter: 2012Q1

REPORT INFORMATION
  Report Type: 
  Country: None (occurrence: None)
  Receive Date: 20120109
  Receipt Date: 20120109
  Transmission Date: 20120608
  Serious: No
  Sender: FDA-Public Use
  Company Number: None

PATIENT

DRUGS (1)
  1. HALDOL [Suspect]

REACTIONS (6)
  - CIRCUMSTANCE OR INFORMATION CAPABLE OF LEADING TO MEDICATION ERROR [None]
  - DYSPHAGIA [None]
  - PNEUMONIA ASPIRATION [None]
  - PRODUCT PACKAGING ISSUE [None]
  - RESPIRATORY DEPRESSION [None]
  - SPEECH DISORDER [None]
